FAERS Safety Report 13671010 (Version 1)
Quarter: 2017Q2

REPORT INFORMATION
  Report Type: Spontaneous
  Country: US (occurrence: US)
  Receive Date: 20170620
  Receipt Date: 20170620
  Transmission Date: 20170830
  Serious: Yes (Disabling)
  Sender: FDA-Public Use
  Company Number: US-ROCHE-1236176

PATIENT
  Age: 59 Year
  Sex: Female

DRUGS (11)
  1. BUPROPION. [Concomitant]
     Active Substance: BUPROPION
  2. OMEPRAZOLE. [Concomitant]
     Active Substance: OMEPRAZOLE
  3. CARAFATE [Concomitant]
     Active Substance: SUCRALFATE
     Route: 065
  4. XELODA [Suspect]
     Active Substance: CAPECITABINE
     Dosage: 1000MG:AM/ 1500MG :PM/ 14 DAYS ON, 7 DAY OFF
     Route: 048
     Dates: start: 201303
  5. GABAPENTIN. [Concomitant]
     Active Substance: GABAPENTIN
     Route: 048
  6. XELODA [Suspect]
     Active Substance: CAPECITABINE
     Indication: BREAST CANCER METASTATIC
     Dosage: 14 DAYS ON AND 7 DAYS OFF
     Route: 048
     Dates: start: 20130304
  7. XELODA [Suspect]
     Active Substance: CAPECITABINE
     Dosage: 1500 MG AT AM AND 1000 MG AT PM
     Route: 048
     Dates: start: 20130425
  8. XANAX [Concomitant]
     Active Substance: ALPRAZOLAM
     Route: 048
  9. OXYCODONE [Concomitant]
     Active Substance: OXYCODONE
  10. XELODA [Suspect]
     Active Substance: CAPECITABINE
     Dosage: 3 TABLETS IN THE MORNING AND 3 IN THE EVENING
     Route: 048
     Dates: start: 20130515
  11. LORAZEPAM. [Concomitant]
     Active Substance: LORAZEPAM
     Route: 048

REACTIONS (12)
  - Hypoaesthesia [Not Recovered/Not Resolved]
  - Dry skin [Not Recovered/Not Resolved]
  - Stomatitis [Not Recovered/Not Resolved]
  - Erythema [Not Recovered/Not Resolved]
  - Nail ridging [Not Recovered/Not Resolved]
  - Palmar-plantar erythrodysaesthesia syndrome [Not Recovered/Not Resolved]
  - Skin tightness [Not Recovered/Not Resolved]
  - Fatigue [Unknown]
  - Skin fissures [Not Recovered/Not Resolved]
  - Memory impairment [Unknown]
  - Pain in extremity [Not Recovered/Not Resolved]
  - Tongue ulceration [Unknown]

NARRATIVE: CASE EVENT DATE: 201303
